FAERS Safety Report 24655857 (Version 6)
Quarter: 2025Q4

REPORT INFORMATION
  Report Type: Spontaneous
  Country: US (occurrence: US)
  Receive Date: 20241124
  Receipt Date: 20251212
  Transmission Date: 20260118
  Serious: Yes (Other)
  Sender: CSL BEHRING
  Company Number: US-BEH-2024185846

PATIENT
  Age: 32 Year
  Sex: Female

DRUGS (60)
  1. HIZENTRA [Suspect]
     Active Substance: HUMAN IMMUNOGLOBULIN G
     Indication: Immunodeficiency common variable
     Dosage: 10GM/50ML EVERY  WEEK
     Route: 058
     Dates: start: 20241029
  2. HIZENTRA [Suspect]
     Active Substance: HUMAN IMMUNOGLOBULIN G
     Dosage: 04 GM/20ML EVERY  WEEK
     Route: 058
     Dates: start: 20241029
  3. HIZENTRA [Suspect]
     Active Substance: HUMAN IMMUNOGLOBULIN G
     Dosage: 15 G, QW(10GM/50ML EVERY  WEEK)
     Route: 058
     Dates: start: 20241029
  4. HIZENTRA [Suspect]
     Active Substance: HUMAN IMMUNOGLOBULIN G
     Dosage: 15 G, QW(10GM/50ML EVERY  WEEK)
     Route: 058
     Dates: start: 20241029
  5. HIZENTRA [Suspect]
     Active Substance: HUMAN IMMUNOGLOBULIN G
     Dosage: 15 G, QW
     Route: 058
     Dates: start: 20241029
  6. SIMLANDI [Suspect]
     Active Substance: ADALIMUMAB-RYVK
     Dosage: UNK
     Route: 065
  7. ALBUTEROL [Concomitant]
     Active Substance: ALBUTEROL
  8. AMITRIPTYLINE HYDROCHLORIDE [Concomitant]
     Active Substance: AMITRIPTYLINE HYDROCHLORIDE
     Dosage: 25 MG
  9. BENZONATATE [Concomitant]
     Active Substance: BENZONATATE
     Dosage: 100 MG CAPSULE
  10. BOOSTRIX-IPV [Concomitant]
     Active Substance: DIPHTHERIA AND TETANUS TOXOIDS AND ACELLULAR PERTUSSIS ADSORBED AND INACTIVATED POLIOVIRUS VACCINE
     Route: 065
  11. BUDESONIDE [Concomitant]
     Active Substance: BUDESONIDE
     Dosage: 0.5 MG
  12. CARBAMAZEPINE [Concomitant]
     Active Substance: CARBAMAZEPINE
     Dosage: 100 MG CAPSULE
  13. CELECOXIB [Concomitant]
     Active Substance: CELECOXIB
     Dosage: 200 MG
  14. CETIRIZINE [Concomitant]
     Active Substance: CETIRIZINE HYDROCHLORIDE
     Dosage: 10 MG
  15. CLOBETASOL [Concomitant]
     Active Substance: CLOBETASOL
     Dosage: 0.5 %
  16. CLOBETASOL [Concomitant]
     Active Substance: CLOBETASOL
     Dosage: 0.05 %
  17. Clonidine bnm [Concomitant]
  18. Cuvitru 1 [Concomitant]
     Dosage: 10/50ML INJECTION
  19. Cuvitru 1 [Concomitant]
     Dosage: 4GM/20ML SOLUTION
  20. Cuvitru 1 [Concomitant]
     Dosage: 4GM/20ML 10 GM/50ML SDV
  21. CYCLOBENZAPRINE [Concomitant]
     Active Substance: CYCLOBENZAPRINE
     Dosage: TABLET
  22. EPINEPHRINE BITARTRATE [Concomitant]
     Active Substance: EPINEPHRINE BITARTRATE
     Dosage: 0.3 MG
  23. FAMOTIDINE [Concomitant]
     Active Substance: FAMOTIDINE
     Dosage: 20 MG
  24. FLUCONAZOLE [Concomitant]
     Active Substance: FLUCONAZOLE
     Dosage: 150 MG
  25. FLUCONAZOLE [Concomitant]
     Active Substance: FLUCONAZOLE
     Dosage: 150 MG CRE
  26. FLUCONAZOLE [Concomitant]
     Active Substance: FLUCONAZOLE
     Dosage: SPR 50MCG
  27. FOLIC ACID [Concomitant]
     Active Substance: FOLIC ACID
     Dosage: 1 MG TABLET
  28. GABAPENTIN [Concomitant]
     Active Substance: GABAPENTIN
     Dosage: 300 MG
  29. HUMIRA [Concomitant]
     Active Substance: ADALIMUMAB
     Dosage: CF 80MG/O.8ML PEN (2=2);
  30. HYDROCHLOROTHIAZIDE [Concomitant]
     Active Substance: HYDROCHLOROTHIAZIDE
     Dosage: 25 MG
  31. HYDROXOCOBALAMIN HYDROCHLORIDE [Concomitant]
     Active Substance: HYDROXOCOBALAMIN HYDROCHLORIDE
  32. HYDROXYZINE [Concomitant]
     Active Substance: HYDROXYZINE HYDROCHLORIDE
     Dosage: 25 MG
  33. HYOSCYAMINE [Concomitant]
     Active Substance: HYOSCYAMINE
     Dosage: 0.125 MG
  34. IPRATROPIUM [Concomitant]
     Active Substance: IPRATROPIUM
     Dosage: SPR 0.03%
  35. KENALOG [Concomitant]
     Active Substance: TRIAMCINOLONE ACETONIDE
     Dosage: 40 INJ 40MG/ML
  36. Lido [Concomitant]
     Dosage: LIDO/PRILOCN CRE 2.5-2.5%;
  37. PRILOCAINE [Concomitant]
     Active Substance: PRILOCAINE
     Dosage: CRE 2.5%;
  38. Medroxyproges lens [Concomitant]
     Dosage: 150MG/ML
  39. METHOTREXATE [Concomitant]
     Active Substance: METHOTREXATE
     Dosage: INJ 25MG/ML
  40. Montelukast 1 A Pharma [Concomitant]
     Dosage: 10 MG
  41. Nortriptylin glenmark [Concomitant]
     Dosage: 50 MG CAPSULE
  42. NYSTATIN [Concomitant]
     Active Substance: NYSTATIN
  43. Triam a [Concomitant]
  44. OMEPRAZOLE\SODIUM BICARBONATE [Concomitant]
     Active Substance: OMEPRAZOLE\SODIUM BICARBONATE
     Dosage: 40 MG
  45. OMEPRAZOLE\SODIUM BICARBONATE [Concomitant]
     Active Substance: OMEPRAZOLE\SODIUM BICARBONATE
     Dosage: 20 MG
  46. ONDANSETRON HYDROCHLORIDE [Concomitant]
     Active Substance: ONDANSETRON HYDROCHLORIDE
     Dosage: 4 MG
  47. PREDNISONE ACETATE [Concomitant]
     Active Substance: PREDNISONE ACETATE
     Dosage: 10 MG
  48. PREDNISONE ACETATE [Concomitant]
     Active Substance: PREDNISONE ACETATE
     Dosage: 20 MG
  49. PREDNISONE ACETATE [Concomitant]
     Active Substance: PREDNISONE ACETATE
     Dosage: 5 MG
  50. PREGABALIN [Concomitant]
     Active Substance: PREGABALIN
     Dosage: 100 MG
  51. PREGABALIN [Concomitant]
     Active Substance: PREGABALIN
     Dosage: 150 MG
  52. PREGABALIN [Concomitant]
     Active Substance: PREGABALIN
     Dosage: 50 MG
  53. QVAR REDIHALER [Concomitant]
     Active Substance: BECLOMETHASONE DIPROPIONATE
     Dosage: 40 MCG
  54. SCOPOLAMINE [Concomitant]
     Active Substance: SCOPOLAMINE
     Dosage: 1 MG 3 DAY
  55. Sulfasalazin en [Concomitant]
     Dosage: 500 MG
  56. TOPAMAX [Concomitant]
     Active Substance: TOPIRAMATE
     Dosage: 100 MG
  57. TOPIRAMATE [Concomitant]
     Active Substance: TOPIRAMATE
     Dosage: 25 MG
  58. Triamcin. aceton.acet., micon.nit.,neom.sulf. [Concomitant]
     Dosage: 40MG/ML
  59. WIXELA INHUB [Concomitant]
     Active Substance: FLUTICASONE PROPIONATE\SALMETEROL XINAFOATE
     Dosage: INHUB AER 100/50
  60. XOLAIR [Concomitant]
     Active Substance: OMALIZUMAB
     Dosage: 150 MG/ML SYR (1=1)

REACTIONS (15)
  - Drug ineffective [Unknown]
  - Condition aggravated [Unknown]
  - Skin lesion [Unknown]
  - Condition aggravated [Unknown]
  - Skin lesion [Unknown]
  - Condition aggravated [Not Recovered/Not Resolved]
  - Skin lesion [Not Recovered/Not Resolved]
  - Psoriasis [Not Recovered/Not Resolved]
  - Skin discolouration [Not Recovered/Not Resolved]
  - Pain [Not Recovered/Not Resolved]
  - Pruritus [Not Recovered/Not Resolved]
  - Condition aggravated [Unknown]
  - Condition aggravated [Not Recovered/Not Resolved]
  - Arthralgia [Not Recovered/Not Resolved]
  - Adverse drug reaction [Not Recovered/Not Resolved]

NARRATIVE: CASE EVENT DATE: 20250310
